FAERS Safety Report 10044206 (Version 1)
Quarter: 2014Q1

REPORT INFORMATION
  Report Type: Spontaneous
  Country: US (occurrence: None)
  Receive Date: 20140327
  Receipt Date: 20140327
  Transmission Date: 20141002
  Serious: Yes (Hospitalization)
  Sender: FDA-Public Use
  Company Number: None

PATIENT
  Age: 65 Year
  Sex: Male
  Weight: 58 kg

DRUGS (1)
  1. ENOXAPARIN (GENERIC) [Suspect]
     Indication: PULMONARY EMBOLISM
     Route: 058
     Dates: start: 20140215

REACTIONS (2)
  - Haematuria [None]
  - Haemorrhage [None]
